FAERS Safety Report 8150527 (Version 3)
Quarter: 2016Q1

REPORT INFORMATION
  Report Type: Spontaneous
  Country: US (occurrence: US)
  Receive Date: 20110922
  Receipt Date: 20160105
  Transmission Date: 20160526
  Serious: No
  Sender: FDA-Public Use
  Company Number: US-ASTRAZENECA-2010SE36186

PATIENT
  Age: 34 Year
  Sex: Male
  Weight: 127 kg

DRUGS (7)
  1. SEROQUEL [Interacting]
     Active Substance: QUETIAPINE FUMARATE
     Indication: BIPOLAR DISORDER
     Dosage: GENERIC, 200 MG AT NIGHT
     Route: 048
     Dates: start: 2003, end: 2007
  2. SEROQUEL [Interacting]
     Active Substance: QUETIAPINE FUMARATE
     Indication: BIPOLAR DISORDER
     Dosage: GENERIC, 200 MG AT NIGHT
     Route: 048
     Dates: start: 2007, end: 2011
  3. TYLENOL-LIKE MEDICINES [Interacting]
     Active Substance: ACETAMINOPHEN
     Route: 065
  4. CRESTOR [Suspect]
     Active Substance: ROSUVASTATIN CALCIUM
     Indication: BLOOD CHOLESTEROL INCREASED
     Route: 048
     Dates: end: 2015
  5. CRESTOR [Suspect]
     Active Substance: ROSUVASTATIN CALCIUM
     Indication: BLOOD TRIGLYCERIDES ABNORMAL
     Route: 048
     Dates: end: 2015
  6. SEROQUEL [Interacting]
     Active Substance: QUETIAPINE FUMARATE
     Indication: BIPOLAR DISORDER
     Route: 048
  7. SEROQUEL [Interacting]
     Active Substance: QUETIAPINE FUMARATE
     Indication: BIPOLAR DISORDER
     Route: 048
     Dates: start: 2007, end: 2007

REACTIONS (12)
  - Adverse drug reaction [Unknown]
  - Weaning failure [Unknown]
  - Blood triglycerides increased [Unknown]
  - Activities of daily living impaired [Recovered/Resolved]
  - Feeling abnormal [Recovered/Resolved]
  - Body temperature increased [Unknown]
  - Blood cholesterol increased [Unknown]
  - Drug ineffective [Not Recovered/Not Resolved]
  - Sedation [Unknown]
  - Drug dose omission [Unknown]
  - Drug interaction [Unknown]
  - Communication disorder [Recovered/Resolved]

NARRATIVE: CASE EVENT DATE: 2007
